FAERS Safety Report 7668712-4 (Version None)
Quarter: 2011Q3

REPORT INFORMATION
  Report Type: 
  Country: None (occurrence: None)
  Receive Date: 20110808
  Receipt Date: 20110728
  Transmission Date: 20111222
  Serious: Yes (Hospitalization)
  Sender: FDA-Public Use
  Company Number: NL-AMGEN-NLDNI2011038268

PATIENT
  Sex: Female

DRUGS (8)
  1. ZOMETA [Suspect]
     Indication: BREAST CANCER
     Dosage: 4 MG, UNK
     Route: 042
     Dates: start: 20110722, end: 20110722
  2. ADRIAMYCIN PFS [Suspect]
     Indication: BREAST CANCER
     Dosage: 95 MG, UNK
     Route: 042
     Dates: start: 20110722, end: 20110722
  3. CYCLOPHOSPHAMIDE [Suspect]
     Indication: BREAST CANCER
     Dosage: 950 MG, UNK
     Route: 042
     Dates: start: 20110722, end: 20110722
  4. NEULASTA [Suspect]
     Indication: PRODUCT USED FOR UNKNOWN INDICATION
     Dosage: UNK
  5. TAXOTERE [Suspect]
     Indication: BREAST CANCER
     Dosage: 140 MG, UNK
     Route: 042
     Dates: start: 20110722, end: 20110722
  6. ONDANSETRON [Concomitant]
  7. GRANISETRON [Concomitant]
  8. DEXAMETHASONE [Concomitant]

REACTIONS (4)
  - NAUSEA [None]
  - PHARYNGEAL OEDEMA [None]
  - DIZZINESS [None]
  - CHEST DISCOMFORT [None]
